FAERS Safety Report 23152438 (Version 1)
Quarter: 2023Q4

REPORT INFORMATION
  Report Type: Spontaneous
  Country: US (occurrence: None)
  Receive Date: 20231107
  Receipt Date: 20231107
  Transmission Date: 20240110
  Serious: No
  Sender: FDA-Public Use
  Company Number: 2023A247601

PATIENT
  Age: 68 Year
  Sex: Female
  Weight: 77.1 kg

DRUGS (6)
  1. FASENRA [Suspect]
     Active Substance: BENRALIZUMAB
     Indication: Asthma
     Route: 058
     Dates: start: 20200925
  2. CLARITIN [Concomitant]
     Active Substance: LORATADINE
  3. IPRATROPIUM [Concomitant]
     Active Substance: IPRATROPIUM
  4. LOSARTAN [Concomitant]
     Active Substance: LOSARTAN
  5. ALBUTEROL [Concomitant]
     Active Substance: ALBUTEROL
  6. TRULICITY SUBCUTANEOUS SOLUTION PEN [Concomitant]

REACTIONS (2)
  - Throat irritation [Not Recovered/Not Resolved]
  - Dry mouth [Not Recovered/Not Resolved]

NARRATIVE: CASE EVENT DATE: 20231001
